FAERS Safety Report 24051974 (Version 1)
Quarter: 2024Q3

REPORT INFORMATION
  Report Type: Spontaneous
  Country: ES (occurrence: ES)
  Receive Date: 20240704
  Receipt Date: 20240704
  Transmission Date: 20241016
  Serious: Yes (Life-Threatening, Hospitalization)
  Sender: TEVA
  Company Number: None

PATIENT
  Age: 67 Year
  Sex: Male
  Weight: 95 kg

DRUGS (2)
  1. CARBOPLATIN [Interacting]
     Active Substance: CARBOPLATIN
     Indication: Adenosquamous cell lung cancer
     Dosage: CARBOPLATINO (2323A)
     Route: 042
     Dates: start: 20240503, end: 20240506
  2. PEMETREXED [Interacting]
     Active Substance: PEMETREXED
     Indication: Adenosquamous cell lung cancer
     Dosage: PEMETREXED (2944A)
     Route: 042
     Dates: start: 20240503, end: 20240506

REACTIONS (2)
  - Febrile neutropenia [Recovered/Resolved]
  - Sepsis [Recovered/Resolved]

NARRATIVE: CASE EVENT DATE: 20240512
